FAERS Safety Report 11059514 (Version 3)
Quarter: 2015Q4

REPORT INFORMATION
  Report Type: Spontaneous
  Country: FR (occurrence: FR)
  Receive Date: 20150423
  Receipt Date: 20151112
  Transmission Date: 20160304
  Serious: Yes (Death, Hospitalization, Other)
  Sender: FDA-Public Use
  Company Number: FR-PFIZER INC-2015133826

PATIENT
  Age: 4 Year
  Sex: Male

DRUGS (10)
  1. BACTRIM [Suspect]
     Active Substance: SULFAMETHOXAZOLE\TRIMETHOPRIM
     Indication: PROPHYLAXIS
  2. BACTRIM [Suspect]
     Active Substance: SULFAMETHOXAZOLE\TRIMETHOPRIM
     Indication: PSEUDOMONAS INFECTION
     Dosage: UNK
     Route: 048
     Dates: start: 20140131, end: 20140209
  3. PIPERACILLIN/TAZOBACTAM [Concomitant]
     Active Substance: PIPERACILLIN SODIUM\TAZOBACTAM SODIUM
     Dosage: UNK
     Dates: start: 20140131, end: 20140211
  4. VANCOMYCIN [Concomitant]
     Active Substance: VANCOMYCIN
     Indication: PSEUDOMONAS INFECTION
     Dosage: UNK
     Dates: start: 20140131, end: 20140210
  5. CIPROFLOXACIN. [Concomitant]
     Active Substance: CIPROFLOXACIN
     Dosage: UNK
     Dates: start: 20140131, end: 20140211
  6. TAMIFLU [Concomitant]
     Active Substance: OSELTAMIVIR PHOSPHATE
     Indication: H1N1 INFLUENZA
     Dosage: UNK
     Dates: start: 20140204, end: 20140209
  7. VANCOMYCIN [Concomitant]
     Active Substance: VANCOMYCIN
     Indication: RESPIRATORY TRACT INFECTION
  8. PRODILANTIN [Suspect]
     Active Substance: FOSPHENYTOIN SODIUM
     Indication: SEIZURE
     Dosage: UNK
     Route: 042
     Dates: start: 20140125, end: 20140214
  9. BACTRIM [Suspect]
     Active Substance: SULFAMETHOXAZOLE\TRIMETHOPRIM
     Indication: RESPIRATORY TRACT INFECTION
     Dosage: DOSE REDUCTION
     Route: 048
     Dates: start: 20140210, end: 20140214
  10. CANCIDAS [Concomitant]
     Active Substance: CASPOFUNGIN ACETATE
     Dosage: UNK
     Dates: start: 20140131

REACTIONS (7)
  - Product use issue [Fatal]
  - Agranulocytosis [Recovered/Resolved with Sequelae]
  - Influenza A virus test positive [Unknown]
  - Astrocytoma, low grade [Fatal]
  - Disease progression [Fatal]
  - Pseudomonas infection [Unknown]
  - Respiratory tract infection [Unknown]

NARRATIVE: CASE EVENT DATE: 20140125
